FAERS Safety Report 4549940-3 (Version None)
Quarter: 2005Q1

REPORT INFORMATION
  Report Type: 
  Country: None (occurrence: None)
  Receive Date: 20050112
  Receipt Date: 20040923
  Transmission Date: 20050727
  Serious: Yes (Hospitalization)
  Sender: FDA-Public Use
  Company Number: PHEH2004US10256

PATIENT
  Age: 45 Year
  Sex: Male
  Weight: 83 kg

DRUGS (8)
  1. METFORMIN HCL [Concomitant]
  2. PROVIGIL [Concomitant]
  3. DEPAKOTE [Concomitant]
  4. WELLBUTRIN [Concomitant]
  5. CLOZARIL [Suspect]
     Indication: SCHIZOPHRENIA, PARANOID TYPE
     Dosage: UNK,UNK
     Route: 048
     Dates: start: 20040419, end: 20040801
  6. CLOZARIL [Suspect]
     Dosage: UNK,UNK
     Route: 048
     Dates: start: 20040801, end: 20040820
  7. CLOZARIL [Suspect]
     Dosage: 200MG QPM,500MG QHS
     Route: 048
     Dates: start: 20040821
  8. CLOZARIL [Suspect]
     Dosage: UNK,UNK
     Route: 048

REACTIONS (7)
  - CHOKING [None]
  - DYSPHAGIA [None]
  - DYSPNOEA [None]
  - GASTROOESOPHAGEAL REFLUX DISEASE [None]
  - LARYNGOSPASM [None]
  - SALIVARY HYPERSECRETION [None]
  - WEIGHT DECREASED [None]
